FAERS Safety Report 6310564-9 (Version None)
Quarter: 2009Q3

REPORT INFORMATION
  Report Type: 
  Country: None (occurrence: None)
  Receive Date: 20090814
  Receipt Date: 20080220
  Transmission Date: 20100115
  Serious: Yes (Congenital Anomaly)
  Sender: FDA-Public Use
  Company Number: US-JNJCH-2009021539

PATIENT
  Sex: Male

DRUGS (1)
  1. ROGAINE [Suspect]
     Indication: PATERNAL DRUGS AFFECTING FOETUS
     Dosage: TEXT:UNSPECIFIED
     Route: 064

REACTIONS (2)
  - CONGENITAL HYPERTRICHOSIS [None]
  - DRUG EXPOSURE DURING PREGNANCY [None]
